FAERS Safety Report 8365847-8 (Version None)
Quarter: 2012Q2

REPORT INFORMATION
  Report Type: 
  Country: None (occurrence: None)
  Receive Date: 20120515
  Receipt Date: 20120507
  Transmission Date: 20120825
  Serious: Yes (Hospitalization)
  Sender: FDA-Public Use
  Company Number: 2012030112

PATIENT
  Age: 59 Year
  Sex: Male

DRUGS (9)
  1. SPIRONOLACTONE [Suspect]
  2. CARVEDILOL [Suspect]
  3. SAXAGLIPTIN (SAXAGLIPTIN [Suspect]
     Indication: TYPE 2 DIABETES MELLITUS
     Dosage: (2 IN 1 D)
     Dates: start: 20110325, end: 20110708
  4. EZETIMIBE [Concomitant]
  5. FUROSEMIDE [Suspect]
  6. ASPIRIN [Concomitant]
  7. TORSEMIDE [Suspect]
  8. PLACEBO [Suspect]
     Indication: TYPE 2 DIABETES MELLITUS
     Dates: start: 20110325
  9. FIBRIC ACID(FIBRIC  ACID) [Concomitant]

REACTIONS (11)
  - HYPOVOLAEMIA [None]
  - CONDITION AGGRAVATED [None]
  - HEPATIC STEATOSIS [None]
  - INFECTION [None]
  - AORTIC VALVE SCLEROSIS [None]
  - HYPOTENSION [None]
  - DILATATION VENTRICULAR [None]
  - LEFT ATRIAL DILATATION [None]
  - AORTIC VALVE INCOMPETENCE [None]
  - RENAL FAILURE ACUTE [None]
  - IRRITABLE BOWEL SYNDROME [None]
